FAERS Safety Report 5706868-0 (Version None)
Quarter: 2008Q2

REPORT INFORMATION
  Report Type: 
  Country: None (occurrence: None)
  Receive Date: 20080416
  Receipt Date: 20080404
  Transmission Date: 20081010
  Serious: Yes (Other)
  Sender: FDA-Public Use
  Company Number: US-ELI_LILLY_AND_COMPANY-US200804001455

PATIENT
  Sex: Female

DRUGS (2)
  1. HUMULIN N [Suspect]
  2. HUMULIN R [Suspect]

REACTIONS (4)
  - DIABETIC RETINOPATHY [None]
  - EYE HAEMORRHAGE [None]
  - GLAUCOMA [None]
  - VISUAL ACUITY REDUCED [None]
